FAERS Safety Report 8271800-5 (Version None)
Quarter: 2012Q2

REPORT INFORMATION
  Report Type: 
  Country: None (occurrence: None)
  Receive Date: 20120410
  Receipt Date: 20120403
  Transmission Date: 20120825
  Serious: Yes (Other)
  Sender: FDA-Public Use
  Company Number: US-US-EMD SERONO, INC.-7123618

PATIENT
  Sex: Female
  Weight: 95 kg

DRUGS (5)
  1. UNSPECIFIED [Concomitant]
     Indication: HYPERTENSION
     Dates: start: 20060101
  2. TRAMADOL HCL [Concomitant]
     Indication: PRODUCT USED FOR UNKNOWN INDICATION
  3. GABAPENTIN [Concomitant]
     Indication: PRODUCT USED FOR UNKNOWN INDICATION
  4. DIOVAN [Concomitant]
     Indication: PRODUCT USED FOR UNKNOWN INDICATION
  5. REBIF [Suspect]
     Indication: PRODUCT USED FOR UNKNOWN INDICATION
     Route: 058

REACTIONS (1)
  - ANKLE FRACTURE [None]
